FAERS Safety Report 9439755 (Version 1)
Quarter: 2013Q3

REPORT INFORMATION
  Report Type: Spontaneous
  Country: US (occurrence: None)
  Receive Date: 20130802
  Receipt Date: 20130802
  Transmission Date: 20140515
  Serious: Yes (Disabling)
  Sender: FDA-Public Use
  Company Number: None

PATIENT
  Age: 59 Year
  Sex: Female
  Weight: 72.12 kg

DRUGS (17)
  1. BONIVA (IBANDRONATE SODIUM) [Suspect]
     Indication: OSTEOPOROSIS
     Dosage: 3 PACKS (1 TABLET PER PACK) 1 TABLET MONTHLY BY MOUTH WITH 8 OZS WATER EMPTY STOMACHE
     Route: 048
     Dates: start: 20130701, end: 20130701
  2. ZOCOR [Concomitant]
  3. SYNTHROID [Concomitant]
  4. PREMARIN (CREAM) [Concomitant]
  5. PATONEL [Concomitant]
  6. AMBIEN [Concomitant]
  7. CENTRUM SILVER [Concomitant]
  8. GLUCOSOMENE [Concomitant]
  9. CALCIUM W/VITAMIN D [Concomitant]
  10. VISION VITAMIN [Concomitant]
  11. TYLENOL EXTRA STREGTH [Concomitant]
  12. TYLENOL ARTHRITIS STRENGTH [Concomitant]
  13. IBUPROPHEN [Concomitant]
  14. NAPROXEN [Concomitant]
  15. BIOFREEZE CREAM [Concomitant]
  16. ASPRACREME [Concomitant]
  17. AMBIEN [Concomitant]

REACTIONS (6)
  - Headache [None]
  - Fatigue [None]
  - Osteoporosis [None]
  - Back pain [None]
  - Impaired work ability [None]
  - Insomnia [None]
